FAERS Safety Report 5337184-7 (Version None)
Quarter: 2007Q2

REPORT INFORMATION
  Report Type: 
  Country: None (occurrence: None)
  Receive Date: 20070529
  Receipt Date: 20070519
  Transmission Date: 20071010
  Serious: Yes (Other)
  Sender: FDA-Public Use
  Company Number: US-PFIZER INC-2007041381

PATIENT
  Age: 72 Year
  Sex: Female
  Weight: 86.2 kg

DRUGS (18)
  1. TIKOSYN [Suspect]
     Route: 048
     Dates: start: 20070517, end: 20070518
  2. NITROGLYCERIN [Concomitant]
  3. TYLENOL [Concomitant]
  4. ASCORBIC ACID [Concomitant]
  5. ACETYLSALICYLIC ACID SRT [Concomitant]
  6. ATENOLOL [Concomitant]
  7. CALCIUM CARBONATE [Concomitant]
  8. CHOLESTYRAMINE [Concomitant]
  9. VITAMIN B-12 [Concomitant]
  10. CARDIZEM [Concomitant]
  11. GUAIPHENESIN [Concomitant]
  12. ALBUTEROL SULFATE/IPRATROPIUM BROMIDE [Concomitant]
  13. MAGNESIUM SULFATE [Concomitant]
  14. MAGNESIUM HYDROXIDE TAB [Concomitant]
  15. PROTONIX [Concomitant]
  16. ROPINIROLE HCL [Concomitant]
  17. SOTALOL HYDROCHLORIDE [Concomitant]
  18. TEMAZEPAM [Concomitant]

REACTIONS (1)
  - FLUID RETENTION [None]
